FAERS Safety Report 6005315-1 (Version None)
Quarter: 2008Q4

REPORT INFORMATION
  Report Type: 
  Country: None (occurrence: None)
  Receive Date: 20081215
  Receipt Date: 20081203
  Transmission Date: 20090506
  Serious: Yes (Congenital Anomaly, Other)
  Sender: FDA-Public Use
  Company Number: 2008AP000136

PATIENT
  Age: 3 Year
  Sex: Female

DRUGS (1)
  1. PAROXETINE HYDROCHLORIDE [Suspect]
     Dosage: TRPL
     Route: 064

REACTIONS (8)
  - ACUTE RESPIRATORY DISTRESS SYNDROME [None]
  - GASTROOESOPHAGEAL REFLUX DISEASE [None]
  - MATERNAL DRUGS AFFECTING FOETUS [None]
  - NEONATAL RESPIRATORY DISTRESS SYNDROME [None]
  - PERSISTENT FOETAL CIRCULATION [None]
  - PULMONARY OEDEMA [None]
  - SEPSIS [None]
  - TORTICOLLIS [None]
